FAERS Safety Report 10418900 (Version 2)
Quarter: 2014Q3

REPORT INFORMATION
  Report Type: Spontaneous
  Country: US (occurrence: None)
  Receive Date: 20140625
  Receipt Date: 20140815
  Transmission Date: 20150326
  Serious: Yes (Hospitalization)
  Sender: FDA-Public Use
  Company Number: A-US2014-97365

PATIENT
  Age: 51 Year
  Sex: Female

DRUGS (9)
  1. KLOR CON (POTASSIUM CHLORIDE) [Concomitant]
  2. OPSUMIT [Suspect]
     Active Substance: MACITENTAN
     Indication: PULMONARY ARTERIAL HYPERTENSION
     Route: 048
     Dates: start: 20140206
  3. SPIRONOLACTONE. [Concomitant]
     Active Substance: SPIRONOLACTONE
  4. NEXIUM (ESOMERPRAZOLE SODIUM) [Concomitant]
  5. SYNTHROID [Concomitant]
     Active Substance: LEVOTHYROXINE SODIUM
  6. TORSEMIDE (TORASEMIDE) [Concomitant]
  7. SILDENAFIL [Concomitant]
     Active Substance: SILDENAFIL
  8. PREDNISONE. [Concomitant]
     Active Substance: PREDNISONE
  9. VITAMIN C [Concomitant]
     Active Substance: ASCORBIC ACID

REACTIONS (4)
  - Haematocrit decreased [None]
  - Anaemia [None]
  - Transfusion [None]
  - Haemoglobin decreased [None]

NARRATIVE: CASE EVENT DATE: 20140407
